FAERS Safety Report 9171251 (Version 1)
Quarter: 2013Q1

REPORT INFORMATION
  Report Type: Spontaneous
  Country: GB (occurrence: None)
  Receive Date: 20130308
  Receipt Date: 20130308
  Transmission Date: 20140127
  Serious: Yes (Other)
  Sender: FDA-Public Use
  Company Number: SPIR20130005

PATIENT
  Age: 80 Year
  Sex: Male

DRUGS (1)
  1. SPIRONOLACTONE TABLETS USP, 100 MG (PUREPAC) [Suspect]
     Indication: CARDIAC FAILURE CONGESTIVE
     Route: 048

REACTIONS (3)
  - Prostate cancer [None]
  - Blood alkaline phosphatase increased [None]
  - Bone pain [None]
